FAERS Safety Report 23867264 (Version 2)
Quarter: 2024Q2

REPORT INFORMATION
  Report Type: Spontaneous
  Country: DE (occurrence: DE)
  Receive Date: 20240517
  Receipt Date: 20240627
  Transmission Date: 20240716
  Serious: Yes (Other)
  Sender: FDA-Public Use
  Company Number: DE-PROCTER+GAMBLE-PH24003954

PATIENT
  Age: 89 Year
  Sex: Female
  Weight: 50 kg

DRUGS (14)
  1. SIMVASTATIN [Suspect]
     Active Substance: SIMVASTATIN
     Dosage: 3 TABLET, 1 /DAY (0-0-1 X 3 TABLET)- SIMVASTATIN 20
     Route: 048
  2. CHOLECALCIFEROL [Suspect]
     Active Substance: CHOLECALCIFEROL
     Indication: Vitamin supplementation
     Dosage: 3 TABLET, 1 /DAY (0-1-0 X 3 TABLETS)
     Route: 048
  3. TILIDINE HYDROCHLORIDE [Suspect]
     Active Substance: TILIDINE HYDROCHLORIDE
     Dosage: 6 TABLET, 2 /DAY (1-0-1 X 3 TABLETS)- TILIDINE 50/4
     Route: 048
  4. ZOLPIDEM [Suspect]
     Active Substance: ZOLPIDEM TARTRATE
     Dosage: 10 TABLET- ZOLPIDEM 10; TOTAL 100MG
     Route: 048
     Dates: start: 20240428
  5. LEVOTHYROXINE SODIUM\LIOTHYRONINE SODIUM [Suspect]
     Active Substance: LEVOTHYROXINE SODIUM\LIOTHYRONINE SODIUM
     Dosage: 3 TABLET, 1 /DAY (1-0-0 X 3 TABLETS)- NOVOTHYRAL 75
     Route: 048
  6. LECITHIN\SODIUM BICARBONATE\SODIUM PHOSPHATE, MONOBASIC [Suspect]
     Active Substance: LECITHIN\SODIUM BICARBONATE\SODIUM PHOSPHATE, MONOBASIC
     Dosage: 3 TABLET, (PRN MEDICATION)
     Route: 048
  7. MOVICOL [Suspect]
     Active Substance: POLYETHYLENE GLYCOL 3350\POTASSIUM CHLORIDE\SODIUM BICARBONATE\SODIUM CHLORIDE
     Dosage: 3 TABLET, (PRN MEDICATION)- MOVICOL
     Route: 048
  8. VERAPAMIL HYDROCHLORIDE [Suspect]
     Active Substance: VERAPAMIL HYDROCHLORIDE
     Dosage: 3 TABLET, 1 /DAY (1-0-0 X 3 TABLETS)- VERAPAMIL 40
     Route: 048
  9. VALERIANA OFFICINALIS [Suspect]
     Active Substance: VALERIAN
     Dosage: 3 TABLET, BEDTIME (0-0-0-1 X 3 TABLETS)
     Route: 048
  10. METAMIZOLE [Suspect]
     Active Substance: METAMIZOLE
     Dosage: 3 TABLET, (PRN MEDICATION)- METAMIZOLE 500
     Route: 048
  11. VALSARTAN [Suspect]
     Active Substance: VALSARTAN
     Dosage: 6 TABLET, 2 /DAY, (1-0-1 X 3 TABLETS)- VALSACOR 160 MG
     Route: 048
  12. CYANOCOBALAMIN\FOLIC ACID\PYRIDOXINE HYDROCHLORIDE [Suspect]
     Active Substance: CYANOCOBALAMIN\FOLIC ACID\PYRIDOXINE HYDROCHLORIDE
     Dosage: 3 TABLET, 1 /DAY (1-0-0 X 3 TABLETS)- MEDYN FORTE
     Route: 048
  13. PANTOPRAZOLE SODIUM [Suspect]
     Active Substance: PANTOPRAZOLE SODIUM
     Dosage: 3 TABLET, 1 /DAY (1-0-0 X 3 TABLETS)- PANTOPRAZOLE 40
     Route: 048
  14. MELPERONE [Suspect]
     Active Substance: MELPERONE
     Dosage: 1.5 TABLET, BEDTIME (0-0-0-1/2 X 3 TABLETS)- MELPERONE 25; TOTAL 3 X 25 MG
     Route: 048
     Dates: start: 20240428

REACTIONS (6)
  - Suicidal ideation [Unknown]
  - Haemodynamic instability [Recovered/Resolved]
  - Disorientation [Unknown]
  - Somnolence [Unknown]
  - Intentional overdose [Unknown]
  - Intentional product misuse [Unknown]
